FAERS Safety Report 8363270-3 (Version None)
Quarter: 2012Q2

REPORT INFORMATION
  Report Type: 
  Country: None (occurrence: None)
  Receive Date: 20120516
  Receipt Date: 20111208
  Transmission Date: 20120825
  Serious: No
  Sender: FDA-Public Use
  Company Number: US-GLAXOSMITHKLINE-A0957330A

PATIENT
  Age: 79 Year
  Sex: Female

DRUGS (6)
  1. MUPIROCIN [Suspect]
     Indication: STAPHYLOCOCCAL INFECTION
     Dosage: 1APP TWICE PER DAY
     Route: 045
     Dates: start: 20110915, end: 20110916
  2. RED YEAST RICE [Concomitant]
  3. FISH OIL [Concomitant]
  4. GARLIC [Concomitant]
  5. MULTI-VITAMIN [Concomitant]
  6. CALCIUM + D [Concomitant]

REACTIONS (2)
  - BREAST PAIN [None]
  - RASH [None]
